FAERS Safety Report 7313631-6 (Version None)
Quarter: 2011Q1

REPORT INFORMATION
  Report Type: 
  Country: None (occurrence: None)
  Receive Date: 20110218
  Receipt Date: 20110218
  Transmission Date: 20110831
  Serious: Yes (Disabling, Other)
  Sender: FDA-Public Use
  Company Number: None

PATIENT
  Age: 20 Year
  Sex: Male
  Weight: 68.0396 kg

DRUGS (1)
  1. OXYMETAZOLINE HCL [Suspect]
     Indication: NASAL CONGESTION
     Dosage: 2-3 SQUIRTS 2 TIMES IN 5 MIN NASAL; 2-3 SQUIRTS 1 TIME NASAL
     Route: 045
     Dates: start: 20110214, end: 20110217

REACTIONS (18)
  - TREMOR [None]
  - DISCOMFORT [None]
  - MOTOR DYSFUNCTION [None]
  - SPEECH DISORDER [None]
  - HYPERACUSIS [None]
  - VISION BLURRED [None]
  - FEELING JITTERY [None]
  - DECREASED APPETITE [None]
  - ENERGY INCREASED [None]
  - DYSPNOEA [None]
  - RETCHING [None]
  - TONGUE OEDEMA [None]
  - NASAL CONGESTION [None]
  - HEADACHE [None]
  - INSOMNIA [None]
  - DRY MOUTH [None]
  - FEELING ABNORMAL [None]
  - DEHYDRATION [None]
